FAERS Safety Report 6932234-6 (Version None)
Quarter: 2010Q3

REPORT INFORMATION
  Report Type: 
  Country: None (occurrence: None)
  Receive Date: 20100819
  Receipt Date: 20100812
  Transmission Date: 20110219
  Serious: No
  Sender: FDA-Public Use
  Company Number: JP-ROCHE-719601

PATIENT
  Sex: Male

DRUGS (6)
  1. AVASTIN [Suspect]
     Indication: LARGE INTESTINE CARCINOMA
     Route: 041
     Dates: start: 20100501
  2. AVASTIN [Suspect]
     Route: 041
  3. IRINOTECAN HYDROCHLORIDE [Concomitant]
     Dosage: DOSAGE IS UNCERTAIN
     Route: 041
  4. FLUOROURACIL [Concomitant]
     Dosage: ROUTE: INTRAVENOUS BOLUS NOTE: DOSAGE IS UNCERTAIN.
     Route: 042
  5. FLUOROURACIL [Concomitant]
     Dosage: ROUTE: INTRAVENOUS DRIP NOTE: DOSAGE IS UNCERTAIN.
     Route: 042
  6. LEUCOVORIN CALCIUM [Concomitant]
     Dosage: DOSAGE IS UNCERTAIN
     Route: 041

REACTIONS (2)
  - HYPERTENSION [None]
  - VISUAL IMPAIRMENT [None]
